FAERS Safety Report 8776552 (Version 5)
Quarter: 2014Q1

REPORT INFORMATION
  Report Type: Report from Study
  Country: JP (occurrence: JP)
  Receive Date: 20120910
  Receipt Date: 20140116
  Transmission Date: 20141002
  Serious: Yes (Hospitalization, Other)
  Sender: FDA-Public Use
  Company Number: JP-VERTEX PHARMACEUTICAL INC.-AE-2012-011233

PATIENT
  Age: 64 Year
  Sex: Female

DRUGS (13)
  1. VX-950 (TELAPREVIR) [Suspect]
     Indication: CHRONIC HEPATITIS C
     Dosage: 2250 MG, QD
     Route: 048
     Dates: start: 20120517, end: 20120727
  2. VX-950 (TELAPREVIR) [Suspect]
     Dosage: 2250 MG, QD
     Route: 048
  3. REBETOL [Suspect]
     Indication: CHRONIC HEPATITIS C
     Dosage: 600 MG, QD
     Route: 048
     Dates: start: 20120517, end: 20120613
  4. REBETOL [Suspect]
     Dosage: 400 MG, QD
     Route: 048
     Dates: start: 20120614, end: 20120802
  5. PEGINTRON [Suspect]
     Indication: CHRONIC HEPATITIS C
     Dosage: 1.5 ?G/KG, WEEK
     Route: 058
     Dates: start: 20120517, end: 20120802
  6. PEGINTRON [Suspect]
     Dosage: 1.5 ?G/KG, WEEK
     Route: 058
     Dates: start: 20120809, end: 20120920
  7. PEGINTRON [Suspect]
     Dosage: 0.75 ?G/KG, WEEK
     Route: 058
     Dates: start: 20120927, end: 20121025
  8. GASMOTIN [Concomitant]
     Dosage: 15 MG, QD
     Route: 048
     Dates: start: 20120517
  9. NAUZELIN [Concomitant]
     Dosage: 30 MG, QD
     Route: 048
     Dates: start: 20120517
  10. ACINON 75 [Concomitant]
     Dosage: 150 MG, QD
     Route: 048
     Dates: start: 20120517
  11. MAINTATE [Concomitant]
     Dosage: 5 MG, QD
     Route: 048
     Dates: start: 20120720
  12. GLACTIV [Concomitant]
     Dosage: 50 MG, QD
     Route: 048
  13. SEIBULE [Concomitant]
     Dosage: 150 MG, QD
     Route: 048
     Dates: start: 20120823

REACTIONS (3)
  - Diabetes mellitus [Recovered/Resolved]
  - Rash [Recovered/Resolved]
  - Haemoglobin decreased [Not Recovered/Not Resolved]
